FAERS Safety Report 7119353-9 (Version None)
Quarter: 2010Q4

REPORT INFORMATION
  Report Type: 
  Country: None (occurrence: None)
  Receive Date: 20101123
  Receipt Date: 20101122
  Transmission Date: 20110411
  Serious: Yes (Hospitalization)
  Sender: FDA-Public Use
  Company Number: GB-BAYER-201047572GPV

PATIENT
  Age: 79 Year
  Sex: Male
  Weight: 98 kg

DRUGS (37)
  1. SORAFENIB [Suspect]
     Indication: HEPATIC NEOPLASM MALIGNANT
     Dosage: UNIT DOSE: 400 MG
     Route: 048
     Dates: start: 20100430, end: 20101117
  2. ERLOTINIB OR PLACEBO [Suspect]
     Indication: HEPATIC NEOPLASM MALIGNANT
     Dosage: UNIT DOSE: 150 MG
     Route: 048
     Dates: start: 20100430, end: 20101117
  3. VITAMIN B12 TEIKOK [Concomitant]
     Indication: PRODUCT USED FOR UNKNOWN INDICATION
     Dosage: 1 TABLET
     Dates: start: 20090501
  4. ALLOPURINOL [Concomitant]
     Indication: GOUT
     Dates: start: 19700101
  5. AMLODIPINE [Concomitant]
     Indication: POSTOPERATIVE CARE
     Dates: start: 20080101
  6. AQUEOUS CREAM [Concomitant]
     Indication: DRY SKIN
     Dosage: USE AS WASH
     Dates: start: 20070101
  7. AQUEOUS CREAM [Concomitant]
     Dates: start: 20100701
  8. ASPIRIN [Concomitant]
     Indication: POSTOPERATIVE CARE
     Dosage: GASTRO RESISTANT
     Dates: start: 20080601
  9. CLENIL MODULITE [Concomitant]
     Indication: ASTHMA
     Dates: start: 19950101
  10. CO-DYDRAMOL [Concomitant]
     Indication: ARTHRITIS
     Dosage: 10 X 500MG
     Dates: start: 20070101
  11. DIPROBASE [Concomitant]
     Indication: RASH ERYTHEMATOUS
     Dates: start: 20100506
  12. EZETIMIBE [Concomitant]
     Indication: POSTOPERATIVE CARE
     Dates: start: 20080601
  13. FOLIC ACID [Concomitant]
     Indication: ANAEMIA
     Dates: start: 20070101
  14. FUROSEMIDE [Concomitant]
     Indication: POSTOPERATIVE CARE
     Dates: start: 20080601
  15. GLUCOSAMINE [Concomitant]
     Indication: ARTHRITIS
     Dates: start: 20070101
  16. HYPROMELLOSE [Concomitant]
     Indication: MACULAR DEGENERATION
     Dates: start: 20020101
  17. NASONEX [Concomitant]
     Indication: ASTHMA
     Route: 045
     Dates: start: 20020101
  18. PERINDOPRIL [Concomitant]
     Indication: POSTOPERATIVE CARE
     Dates: start: 20080601
  19. SALBUTAMOL [Concomitant]
     Indication: ASTHMA
     Route: 055
     Dates: start: 19950101
  20. SIMVASTATIN [Concomitant]
     Indication: POSTOPERATIVE CARE
     Dates: start: 20080601
  21. SODIUM CROMOGLICATE [Concomitant]
     Indication: MACULAR DEGENERATION
     Dates: start: 19700101
  22. TAMSULOSIN [Concomitant]
     Indication: URINARY RETENTION
     Dates: start: 20070101
  23. FLUOXETINE [Concomitant]
     Indication: DEPRESSION
     Dates: start: 20080601
  24. AMITRIPTYLINE HCL [Concomitant]
     Indication: PRURITUS
     Dates: start: 20050101
  25. CHLORHEXIDINE GLUCONATE [Concomitant]
     Indication: MOUTH ULCERATION
     Dates: start: 20100521
  26. PIRITON [Concomitant]
     Indication: PRURITUS
     Dates: start: 20100506, end: 20100513
  27. DOUBLE BASE CREAM [Concomitant]
     Indication: RASH
     Dates: start: 20100506
  28. EURAX [Concomitant]
     Indication: RASH
     Dates: start: 20100506
  29. RANITIDINE HCL [Concomitant]
     Indication: PROPHYLAXIS
     Dates: start: 20100528
  30. URAX CREAM [Concomitant]
     Indication: DRY SKIN
     Dates: start: 20100521
  31. DERMOL 500 [Concomitant]
     Indication: DRY SKIN
     Dates: start: 20100701
  32. FLUCLOX [Concomitant]
     Indication: SKIN INFECTION
     Dates: start: 20100625, end: 20100701
  33. XYLOCAIN ADRENALINE [Concomitant]
     Indication: BIOPSY SKIN
     Dates: start: 20100701, end: 20100701
  34. XYLOCAIN ADRENALINE [Concomitant]
     Dates: start: 20100818, end: 20100818
  35. CORSADYL [Concomitant]
     Indication: GINGIVITIS
     Dates: start: 20100915
  36. LOPERAMIDE [Concomitant]
     Indication: DIARRHOEA
     Dates: start: 20101001
  37. DIAROLYTE [Concomitant]
     Indication: DIARRHOEA
     Dates: start: 20101001

REACTIONS (2)
  - HAEMOGLOBIN DECREASED [None]
  - LETHARGY [None]
